FAERS Safety Report 11981357 (Version 1)
Quarter: 2016Q1

REPORT INFORMATION
  Report Type: Spontaneous
  Country: MX (occurrence: MX)
  Receive Date: 20160130
  Receipt Date: 20160130
  Transmission Date: 20160526
  Serious: Yes (Other)
  Sender: FDA-Public Use
  Company Number: MX-CIPLA LTD.-2016MX00300

PATIENT

DRUGS (4)
  1. DIPHENHYDRAMINE. [Concomitant]
     Active Substance: DIPHENHYDRAMINE
     Dosage: 50 MG, UNK (30 MIN BEFORE THE CETUXIMAB INFUSION)
     Route: 042
  2. GEMCITABINE [Suspect]
     Active Substance: GEMCITABINE\GEMCITABINE HYDROCHLORIDE
     Indication: SQUAMOUS CELL CARCINOMA
     Dosage: 50 MG/M2 FOR 60 MIN PRIOR TO RADIO THERAPY ON THE FIRST DAY OF EACH 7-DAY CYCLE
     Route: 042
  3. CETUXIMAB [Suspect]
     Active Substance: CETUXIMAB
     Indication: SQUAMOUS CELL CARCINOMA
     Dosage: 400 MG/M2 FOR 2 H, FOLLOWED BY WEEKLY DOSES OF 250 MG/M2 FOR 1 H
     Route: 042
  4. DEXAMETHASONE. [Concomitant]
     Active Substance: DEXAMETHASONE
     Dosage: 20 MG, UNK (30 MIN BEFORE THE CETUXIMAB INFUSION)
     Route: 042

REACTIONS (1)
  - Dry mouth [Unknown]
